FAERS Safety Report 9281465 (Version 1)
Quarter: 2013Q2

REPORT INFORMATION
  Report Type: Spontaneous
  Country: US (occurrence: US)
  Receive Date: 20130509
  Receipt Date: 20130509
  Transmission Date: 20140414
  Serious: Yes (Hospitalization)
  Sender: FDA-Public Use
  Company Number: US-CUBIST PHARMACEUTICALS, INC.-2013CBST000374

PATIENT
  Sex: 0

DRUGS (3)
  1. CUBICIN [Suspect]
     Indication: STAPHYLOCOCCAL INFECTION
     Dosage: 1 G, 10ML
     Route: 042
     Dates: start: 20130426, end: 20130501
  2. CUBICIN [Suspect]
     Indication: KNEE ARTHROPLASTY
  3. CUBICIN [Suspect]
     Indication: OFF LABEL USE

REACTIONS (5)
  - Neutropenia [Not Recovered/Not Resolved]
  - Sepsis [Unknown]
  - Pyrexia [Unknown]
  - Tachycardia [Unknown]
  - Chills [Unknown]
